FAERS Safety Report 4659312-9 (Version None)
Quarter: 2005Q2

REPORT INFORMATION
  Report Type: 
  Country: None (occurrence: None)
  Receive Date: 20050510
  Receipt Date: 20050428
  Transmission Date: 20051028
  Serious: Yes (Hospitalization)
  Sender: FDA-Public Use
  Company Number: 2005AP02511

PATIENT
  Age: 64 Year
  Sex: Female
  Weight: 41.5 kg

DRUGS (12)
  1. IRESSA [Suspect]
     Indication: NON-SMALL CELL LUNG CANCER
     Dosage: 250 MG DAILY PO
     Route: 048
     Dates: start: 20050412, end: 20050425
  2. OXYCONTIN [Suspect]
     Indication: PAIN
     Dosage: 10 MG DAILY PO
     Route: 048
     Dates: start: 20050403, end: 20050425
  3. NAUZELIN [Concomitant]
  4. SELBEX [Concomitant]
  5. BROCIN-CODEINE [Concomitant]
  6. LOXONIN [Concomitant]
  7. MAGLAX [Concomitant]
  8. PURSENNID [Concomitant]
  9. OPSO DAINIPPON [Concomitant]
  10. LASIX [Concomitant]
  11. MUCOSOLVAN [Concomitant]
  12. ASVERIN [Concomitant]

REACTIONS (5)
  - ABDOMINAL PAIN UPPER [None]
  - ADJUSTMENT DISORDER [None]
  - ANXIETY DISORDER [None]
  - NEUROSIS [None]
  - VOMITING [None]
